FAERS Safety Report 22046844 (Version 2)
Quarter: 2023Q2

REPORT INFORMATION
  Report Type: Spontaneous
  Country: US (occurrence: US)
  Receive Date: 20230228
  Receipt Date: 20230421
  Transmission Date: 20230722
  Serious: Yes (Other)
  Sender: FDA-Public Use
  Company Number: US-BIOGEN-2023BI01189994

PATIENT
  Age: 64 Year
  Sex: Female

DRUGS (21)
  1. TECFIDERA [Suspect]
     Active Substance: DIMETHYL FUMARATE
     Indication: Multiple sclerosis
     Dosage: MAINTENANCE DOSE
     Route: 050
  2. ASPIRIN [Concomitant]
     Active Substance: ASPIRIN
     Indication: Product used for unknown indication
     Dosage: 1 TIME EACH DAY AT THE SAME TIME
     Route: 050
  3. DEXILANT [Concomitant]
     Active Substance: DEXLANSOPRAZOLE
     Indication: Product used for unknown indication
     Route: 050
  4. DULERA [Concomitant]
     Active Substance: FORMOTEROL FUMARATE DIHYDRATE\MOMETASONE FUROATE
     Indication: Product used for unknown indication
     Dosage: INHALE 2 PUFFS BID AS DIRECTED
     Route: 050
  5. PREDNISONE [Concomitant]
     Active Substance: PREDNISONE
     Indication: Product used for unknown indication
     Route: 050
  6. PROAIR HFA [Concomitant]
     Active Substance: ALBUTEROL SULFATE
     Indication: Product used for unknown indication
     Dosage: 108 (90 MC)
     Route: 050
  7. NORVASC [Concomitant]
     Active Substance: AMLODIPINE BESYLATE
     Indication: Product used for unknown indication
     Dosage: TAKE 1 TABLET (10 MG TOTAL) BY MOUTH 1 TIME EACH DAY
     Route: 050
  8. VITAMIN C [Concomitant]
     Active Substance: ASCORBIC ACID
     Indication: Product used for unknown indication
     Dosage: 1 TIME EACH DAY AT THE SAME TIME
     Route: 050
  9. ALBUTEROL SULFATE [Concomitant]
     Active Substance: ALBUTEROL SULFATE
     Indication: Product used for unknown indication
     Dosage: INHALE 2 PUFFS IF NEEDED
     Route: 050
  10. PROVENTIL HFA [Concomitant]
     Active Substance: ALBUTEROL SULFATE
     Indication: Product used for unknown indication
     Dosage: INHALE 2 PUFFS IF NEEDED
     Route: 050
  11. VENTOLIN HFA [Concomitant]
     Active Substance: ALBUTEROL SULFATE
     Indication: Product used for unknown indication
     Dosage: INHALE 2 PUFFS IF NEEDED
     Route: 050
  12. LIPITOR [Concomitant]
     Active Substance: ATORVASTATIN CALCIUM
     Indication: Product used for unknown indication
     Dosage: TAKE 1 TABLET (40 MG IN TOTAL) BY MOUTH 1 TIME EACH DAY
     Route: 050
  13. CALCIUM CARBONATE [Concomitant]
     Active Substance: CALCIUM CARBONATE
     Indication: Product used for unknown indication
     Dosage: 1 TAB
     Route: 050
  14. Vitamin D3, cholecalciferol [Concomitant]
     Indication: Product used for unknown indication
     Dosage: 1000000 UNITS/GRAM POWDER
     Route: 050
  15. DEXILANT [Concomitant]
     Active Substance: DEXLANSOPRAZOLE
     Indication: Product used for unknown indication
     Dosage: TAKE 1 CAPSULE (30 MG IN TOTAL) BY MOUTH 1 (ONE) TIME EACH DAY
     Route: 050
  16. EPIPEN [Concomitant]
     Active Substance: EPINEPHRINE
     Indication: Anaphylactic reaction
     Dosage: INJECT 0.3 ML (0.3 MG TOTAL) INTO THE THIGH IF NEEDED FOR ANAPHYLAXIS. CALL 911 AFTER USE. MAY RE...
     Route: 050
  17. ERGOCALCIFEROL (VITAMIN D2) [Concomitant]
     Active Substance: ERGOCALCIFEROL
     Indication: Product used for unknown indication
     Dosage: TAKE 1 CAPSULE (50,000 UNITS TOTAL) BY MOUTH 1 TIME PER WEEK
     Route: 050
  18. RAZADYNE ER (GALANTAMINE ER) [Concomitant]
     Indication: Product used for unknown indication
     Dosage: TAKE 1 CAPSULE (24 MG TOTAL) BY MOUTH AT BEDTIME
     Route: 050
  19. MAGNESIUM [Concomitant]
     Active Substance: MAGNESIUM
     Indication: Product used for unknown indication
     Route: 050
  20. EFFEXOR [Concomitant]
     Active Substance: VENLAFAXINE HYDROCHLORIDE
     Indication: Product used for unknown indication
     Dosage: TAKE 2 TABLETS (75 MG TOTAL) BY MOUTH 1 TIME EACH DAY
     Route: 050
  21. TRINTELLIX [Concomitant]
     Active Substance: VORTIOXETINE HYDROBROMIDE
     Indication: Product used for unknown indication
     Dosage: 1 TIME EACH DAY AT THE SAME TIME
     Route: 050

REACTIONS (4)
  - Temporal lobe epilepsy [Recovered/Resolved]
  - Syncope [Unknown]
  - Tooth fracture [Unknown]
  - Bone contusion [Unknown]

NARRATIVE: CASE EVENT DATE: 20230101
